FAERS Safety Report 22099593 (Version 1)
Quarter: 2023Q1

REPORT INFORMATION
  Report Type: Spontaneous
  Country: US (occurrence: None)
  Receive Date: 20230315
  Receipt Date: 20230315
  Transmission Date: 20230417
  Serious: No
  Sender: FDA-Public Use
  Company Number: None

PATIENT
  Sex: Female

DRUGS (1)
  1. HUMIRA [Suspect]
     Active Substance: ADALIMUMAB
     Indication: Rheumatoid arthritis
     Dosage: OTHER FREQUENCY : EVERY7DAYS;?
     Route: 042
     Dates: start: 202201

REACTIONS (5)
  - Pain [None]
  - Musculoskeletal stiffness [None]
  - Therapy change [None]
  - Fatigue [None]
  - Inappropriate schedule of product administration [None]
